FAERS Safety Report 9665433 (Version 1)
Quarter: 2013Q4

REPORT INFORMATION
  Report Type: Spontaneous
  Country: US (occurrence: None)
  Receive Date: 20131031
  Receipt Date: 20131031
  Transmission Date: 20140711
  Serious: No
  Sender: FDA-Public Use
  Company Number: None

PATIENT
  Age: 70 Year
  Sex: Female
  Weight: 113.4 kg

DRUGS (21)
  1. MINOCYCLINE [Suspect]
     Indication: OCULAR ROSACEA
     Dosage: 1 DAILY
     Route: 048
     Dates: start: 20130417, end: 20131003
  2. GLIPIZIDE [Concomitant]
  3. ONGLYZA [Concomitant]
  4. ASA [Concomitant]
  5. VASOTEC [Concomitant]
  6. CELEBREX [Concomitant]
  7. PROTONIX [Concomitant]
  8. COSOPT DROPS [Concomitant]
  9. PIILOCARPINE 4% DROPS [Concomitant]
  10. POLY B DROPS [Concomitant]
  11. POLY B DROPS [Concomitant]
  12. LATANOPROST DROPS [Concomitant]
  13. OXYBUTYN [Concomitant]
  14. BIOTIN [Concomitant]
  15. AMINO BURST [Concomitant]
  16. FOLIC ACID [Concomitant]
  17. MULTIVIT [Concomitant]
  18. FISH OIL [Concomitant]
  19. B-COMPLEX [Concomitant]
  20. ZINC CHROMIUM PICOLINATE [Concomitant]
  21. D3- CALCIUM [Concomitant]

REACTIONS (1)
  - Alopecia [None]
